FAERS Safety Report 20033167 (Version 4)
Quarter: 2021Q4

REPORT INFORMATION
  Report Type: Report from Study
  Country: JP (occurrence: JP)
  Receive Date: 20211104
  Receipt Date: 20211201
  Transmission Date: 20220303
  Serious: Yes (Hospitalization)
  Sender: FDA-Public Use
  Company Number: JP-NOVARTISPH-NVSJ2021JP017721

PATIENT
  Age: 65 Year
  Sex: Male
  Weight: 48.5 kg

DRUGS (16)
  1. ISCALIMAB [Suspect]
     Active Substance: ISCALIMAB
     Indication: Renal transplant
     Dosage: 450 MG, Q2W
     Route: 058
     Dates: start: 20191001
  2. TACROLIMUS [Suspect]
     Active Substance: TACROLIMUS
     Indication: Prophylaxis against transplant rejection
     Dosage: 0.5 MG, QD
     Route: 048
     Dates: start: 20210831
  3. METHYLPREDNISOLONE [Suspect]
     Active Substance: METHYLPREDNISOLONE
     Indication: Prophylaxis against transplant rejection
     Dosage: 4 MG, QD
     Route: 048
     Dates: start: 20180906, end: 20211109
  4. ASPIRIN [Concomitant]
     Active Substance: ASPIRIN
     Indication: Angina pectoris
     Dosage: 100 MG, QD
     Route: 048
     Dates: start: 20190812
  5. VONOPRAZAN FUMARATE [Concomitant]
     Active Substance: VONOPRAZAN FUMARATE
     Indication: Gastrooesophageal reflux disease
     Dosage: 10 MG, QD
     Route: 048
     Dates: start: 20200708
  6. NICORANDIL [Concomitant]
     Active Substance: NICORANDIL
     Indication: Angina pectoris
     Dosage: 5 MG, TID
     Route: 048
     Dates: start: 20180810
  7. METHYLCOBALAMIN [Concomitant]
     Active Substance: METHYLCOBALAMIN
     Indication: Neuropathy peripheral
     Dosage: 500 MG, TID
     Route: 048
     Dates: start: 20181031
  8. CARVEDILOL [Concomitant]
     Active Substance: CARVEDILOL
     Indication: Hypertension
     Dosage: 10 MG, BID
     Route: 048
     Dates: start: 20180815
  9. BUTYRIC ACID [Concomitant]
     Active Substance: BUTYRIC ACID
     Indication: Product used for unknown indication
     Dosage: 1 G, TID
     Route: 048
     Dates: start: 20180812
  10. PREGABALIN [Concomitant]
     Active Substance: PREGABALIN
     Indication: Neuropathy peripheral
     Dosage: 150 MG, BID
     Route: 048
     Dates: start: 20201124
  11. NAFTOPIDIL [Concomitant]
     Active Substance: NAFTOPIDIL
     Indication: Benign prostatic hyperplasia
     Dosage: 25 MG, QD
     Route: 048
     Dates: start: 20180824
  12. BROTIZOLAM [Concomitant]
     Active Substance: BROTIZOLAM
     Indication: Insomnia
     Dosage: 0.5 MG, QD
     Route: 048
     Dates: start: 20180817
  13. FLUNITRAZEPAM [Concomitant]
     Active Substance: FLUNITRAZEPAM
     Indication: Insomnia
     Dosage: 2 MG, QD
     Route: 048
     Dates: start: 20180817
  14. HUMAN IMMUNOGLOBULIN G [Concomitant]
     Active Substance: HUMAN IMMUNOGLOBULIN G
     Indication: Mononeuropathy multiplex
     Dosage: 20 G, QD
     Route: 042
     Dates: start: 20210821
  15. SULFAMETHOXAZOLE AND TRIMETHOPRIM [Concomitant]
     Active Substance: SULFAMETHOXAZOLE\TRIMETHOPRIM
     Indication: Infection prophylaxis
     Dosage: 3 DF, BID
     Route: 048
     Dates: start: 20211025
  16. CEFTRIAXONE SODIUM [Concomitant]
     Active Substance: CEFTRIAXONE SODIUM
     Indication: Infection prophylaxis
     Dosage: 1 G, QD
     Route: 042
     Dates: start: 20211025, end: 20211027

REACTIONS (1)
  - Organising pneumonia [Recovering/Resolving]

NARRATIVE: CASE EVENT DATE: 20211012
